FAERS Safety Report 11963437 (Version 2)
Quarter: 2016Q2

REPORT INFORMATION
  Report Type: Report from Study
  Country: BR (occurrence: BR)
  Receive Date: 20160126
  Receipt Date: 20160404
  Transmission Date: 20160815
  Serious: Yes (Hospitalization, Other)
  Sender: FDA-Public Use
  Company Number: BR-ROCHE-1670227

PATIENT
  Sex: Female
  Weight: 13.2 kg

DRUGS (4)
  1. DOMPERIDONE [Concomitant]
     Active Substance: DOMPERIDONE
  2. PULMOZYME [Suspect]
     Active Substance: DORNASE ALFA
     Indication: CYSTIC FIBROSIS
     Route: 065
  3. ENZYMES [Concomitant]
  4. OMEPRAZOLE. [Concomitant]
     Active Substance: OMEPRAZOLE

REACTIONS (6)
  - Malaise [Not Recovered/Not Resolved]
  - Weight gain poor [Unknown]
  - Gastrooesophageal reflux disease [Unknown]
  - Feeding disorder [Unknown]
  - Sputum retention [Unknown]
  - Asthenia [Unknown]
